FAERS Safety Report 15394582 (Version 1)
Quarter: 2018Q3

REPORT INFORMATION
  Report Type: Spontaneous
  Country: US (occurrence: US)
  Receive Date: 20180918
  Receipt Date: 20180918
  Transmission Date: 20181010
  Serious: Yes (Other)
  Sender: FDA-Public Use
  Company Number: US-ALVOGEN-2018-ALVOGEN-097351

PATIENT
  Age: 23 Year
  Sex: Male

DRUGS (1)
  1. DAPSONE. [Suspect]
     Active Substance: DAPSONE
     Indication: ARTHROPOD BITE
     Dosage: COMPLETED A 20?DAY PRESCRIPTION OF DAPSONE

REACTIONS (4)
  - Liver injury [Recovering/Resolving]
  - Encephalopathy [Recovering/Resolving]
  - Drug reaction with eosinophilia and systemic symptoms [Recovering/Resolving]
  - Rash [Recovered/Resolved]
